FAERS Safety Report 10932914 (Version 1)
Quarter: 2015Q1

REPORT INFORMATION
  Report Type: Spontaneous
  Country: US (occurrence: None)
  Receive Date: 20150319
  Receipt Date: 20150319
  Transmission Date: 20150721
  Serious: Yes (Disabling)
  Sender: FDA-Public Use
  Company Number: None

PATIENT
  Age: 82 Year
  Sex: Female
  Weight: 68.04 kg

DRUGS (10)
  1. MECLIZINE [Concomitant]
     Active Substance: MECLIZINE\MECLIZINE HYDROCHLORIDE
  2. OMEPRAZOLE. [Concomitant]
     Active Substance: OMEPRAZOLE
  3. ADVAIR DISKUS [Suspect]
     Active Substance: FLUTICASONE PROPIONATE\SALMETEROL XINAFOATE
     Indication: CHRONIC OBSTRUCTIVE PULMONARY DISEASE
     Route: 048
     Dates: start: 20140912, end: 20141015
  4. CENTRUM SILVER [Concomitant]
     Active Substance: VITAMINS
  5. CETIRIZINE [Concomitant]
     Active Substance: CETIRIZINE HYDROCHLORIDE
  6. MONTELUKAST [Concomitant]
     Active Substance: MONTELUKAST SODIUM
  7. HYOSCYAMINE [Concomitant]
     Active Substance: HYOSCYAMINE
  8. CALTRATE [Concomitant]
     Active Substance: CALCIUM CARBONATE
  9. FISH OIL [Concomitant]
     Active Substance: FISH OIL
  10. ZETIA [Concomitant]
     Active Substance: EZETIMIBE

REACTIONS (3)
  - Oropharyngeal pain [None]
  - Throat irritation [None]
  - Glossitis [None]

NARRATIVE: CASE EVENT DATE: 201409
